FAERS Safety Report 7145371-0 (Version None)
Quarter: 2010Q4

REPORT INFORMATION
  Report Type: 
  Country: None (occurrence: None)
  Receive Date: 20101208
  Receipt Date: 20101201
  Transmission Date: 20110411
  Serious: Yes (Other)
  Sender: FDA-Public Use
  Company Number: BR-ROCHE-719278

PATIENT
  Sex: Female
  Weight: 60 kg

DRUGS (1)
  1. BONIVA [Suspect]
     Indication: OSTEOPOROSIS
     Dosage: FORM: INFUSION
     Route: 042
     Dates: start: 20090827, end: 20100801

REACTIONS (15)
  - APPLICATION SITE NODULE [None]
  - APPLICATION SITE REACTION [None]
  - APPLICATION SITE SWELLING [None]
  - GASTRITIS [None]
  - INFUSION SITE ERYTHEMA [None]
  - INFUSION SITE INDURATION [None]
  - INFUSION SITE INFLAMMATION [None]
  - INFUSION SITE MASS [None]
  - INFUSION SITE PAIN [None]
  - INFUSION SITE SWELLING [None]
  - INFUSION SITE THROMBOSIS [None]
  - INJECTION SITE INFLAMMATION [None]
  - INJECTION SITE THROMBOSIS [None]
  - PAIN [None]
  - THROMBOPHLEBITIS SUPERFICIAL [None]
